FAERS Safety Report 7030347-4 (Version None)
Quarter: 2010Q4

REPORT INFORMATION
  Report Type: 
  Country: None (occurrence: None)
  Receive Date: 20101006
  Receipt Date: 20100930
  Transmission Date: 20110411
  Serious: Yes (Hospitalization)
  Sender: FDA-Public Use
  Company Number: CA-US-EMD SERONO, INC.-230417J08CAN

PATIENT
  Sex: Female
  Weight: 46 kg

DRUGS (8)
  1. REBIF [Suspect]
     Indication: RELAPSING-REMITTING MULTIPLE SCLEROSIS
     Dates: start: 20060419, end: 20090507
  2. REBIF [Suspect]
     Dates: start: 20090509
  3. ASPIRIN [Concomitant]
  4. ZOPICLONE [Concomitant]
  5. IBUPROFEN [Concomitant]
  6. TYLENOL [Concomitant]
  7. NITRAZADON [Concomitant]
  8. VITAMIN D [Concomitant]

REACTIONS (14)
  - ARTHROPATHY [None]
  - BLOOD CHOLESTEROL INCREASED [None]
  - BURNING SENSATION [None]
  - FEELING HOT [None]
  - HEADACHE [None]
  - INFLUENZA LIKE ILLNESS [None]
  - MALAISE [None]
  - MULTIPLE SCLEROSIS RELAPSE [None]
  - NAUSEA [None]
  - OEDEMA PERIPHERAL [None]
  - PERIPHERAL COLDNESS [None]
  - PYREXIA [None]
  - SKIN DISCOLOURATION [None]
  - WEIGHT DECREASED [None]
